FAERS Safety Report 5863981-5 (Version None)
Quarter: 2008Q3

REPORT INFORMATION
  Report Type: 
  Country: None (occurrence: None)
  Receive Date: 20080829
  Receipt Date: 20080826
  Transmission Date: 20090109
  Serious: Yes (Death)
  Sender: FDA-Public Use
  Company Number: DE-BAYER-200813298GPV

PATIENT

DRUGS (9)
  1. FLUDARA [Suspect]
     Indication: ALLOGENIC BONE MARROW TRANSPLANTATION THERAPY
     Dosage: TOTAL DAILY DOSE: 30 MG/M2
     Route: 042
  2. AMSACRINE [Suspect]
     Indication: ALLOGENIC BONE MARROW TRANSPLANTATION THERAPY
     Dosage: TOTAL DAILY DOSE: 100 MG/M2
     Route: 042
  3. CYTARABINE [Suspect]
     Indication: ALLOGENIC BONE MARROW TRANSPLANTATION THERAPY
     Dosage: TOTAL DAILY DOSE: 2000 MG/M2
     Route: 042
  4. BUSULFAN [Suspect]
     Indication: ALLOGENIC BONE MARROW TRANSPLANTATION THERAPY
     Dosage: TOTAL DAILY DOSE: 8 MG/KG
     Route: 042
  5. CYCLOPHOSPHAMIDE [Suspect]
     Indication: ALLOGENIC BONE MARROW TRANSPLANTATION THERAPY
     Dosage: TOTAL DAILY DOSE: 80 MG/KG
     Route: 042
  6. CYCLOPHOSPHAMIDE [Suspect]
     Dosage: TOTAL DAILY DOSE: 120 MG/KG
     Route: 042
  7. THYMOGLOBULIN [Suspect]
     Indication: ALLOGENIC BONE MARROW TRANSPLANTATION THERAPY
     Dosage: TOTAL DAILY DOSE: 30 MG/KG
     Route: 042
  8. THYMOGLOBULIN [Suspect]
     Dosage: TOTAL DAILY DOSE: 60 MG/KG
     Route: 042
  9. IMMUNOSUPPRESSANTS [Concomitant]
     Indication: IMMUNOSUPPRESSION
     Route: 065

REACTIONS (1)
  - COMPLICATIONS OF BONE MARROW TRANSPLANT [None]
